FAERS Safety Report 14417519 (Version 1)
Quarter: 2018Q1

REPORT INFORMATION
  Report Type: Report from Study
  Country: NL (occurrence: NL)
  Receive Date: 20180122
  Receipt Date: 20180122
  Transmission Date: 20180509
  Serious: Yes (Death, Other)
  Sender: FDA-Public Use
  Company Number: NL-AMGEN-NLDSL2017018767

PATIENT
  Age: 79 Year
  Sex: Female

DRUGS (1)
  1. ARANESP [Suspect]
     Active Substance: DARBEPOETIN ALFA
     Indication: NEPHROGENIC ANAEMIA
     Dosage: 10 MUG (25MUG/ML, 0.4ML), QWK
     Route: 058

REACTIONS (2)
  - Intentional product misuse [Unknown]
  - Death [Fatal]

NARRATIVE: CASE EVENT DATE: 20170202
